FAERS Safety Report 18872909 (Version 1)
Quarter: 2021Q1

REPORT INFORMATION
  Report Type: Spontaneous
  Country: US (occurrence: US)
  Receive Date: 20210209
  Receipt Date: 20210209
  Transmission Date: 20210420
  Serious: No
  Sender: FDA-Public Use
  Company Number: None

PATIENT
  Age: 65 Year
  Sex: Male

DRUGS (1)
  1. PROTAMINE SULFATE (PROTAMINE SO4 10MG/ML (PF) INJ) [Suspect]
     Active Substance: PROTAMINE SULFATE
     Indication: ATRIAL FIBRILLATION
     Route: 042
     Dates: start: 20210201, end: 20210201

REACTIONS (1)
  - Hypotension [None]

NARRATIVE: CASE EVENT DATE: 20210202
